FAERS Safety Report 6572210-9 (Version None)
Quarter: 2010Q1

REPORT INFORMATION
  Report Type: 
  Country: None (occurrence: None)
  Receive Date: 20100205
  Receipt Date: 20100125
  Transmission Date: 20100710
  Serious: Yes (Other)
  Sender: FDA-Public Use
  Company Number: FR-WATSON-2010-01014

PATIENT
  Age: 60 Year
  Sex: Female

DRUGS (1)
  1. HYDROXYZINE HCL [Suspect]
     Indication: PREMEDICATION
     Dosage: 100 MG, SINGLE
     Route: 042

REACTIONS (1)
  - ANAPHYLACTIC REACTION [None]
